FAERS Safety Report 9516921 (Version 1)
Quarter: 2013Q3

REPORT INFORMATION
  Report Type: Spontaneous
  Country: US (occurrence: US)
  Receive Date: 20130911
  Receipt Date: 20130911
  Transmission Date: 20140515
  Serious: Yes (Other)
  Sender: FDA-Public Use
  Company Number: US-PFIZER INC-2013258863

PATIENT
  Age: 50 Year
  Sex: Female

DRUGS (1)
  1. CELEBREX [Suspect]
     Indication: PAIN
     Dosage: 2 DF, UNK

REACTIONS (7)
  - Local swelling [Unknown]
  - Lip swelling [Unknown]
  - Swelling face [Unknown]
  - Rash erythematous [Unknown]
  - Tachycardia [Unknown]
  - Nausea [Unknown]
  - Blood pressure decreased [Unknown]
